FAERS Safety Report 13470318 (Version 1)
Quarter: 2017Q2

REPORT INFORMATION
  Report Type: Spontaneous
  Country: DE (occurrence: DE)
  Receive Date: 20170423
  Receipt Date: 20170423
  Transmission Date: 20170830
  Serious: Yes (Other)
  Sender: FDA-Public Use
  Company Number: DE-MYLANLABS-2017M1024089

PATIENT

DRUGS (5)
  1. RISPERIDONE. [Suspect]
     Active Substance: RISPERIDONE
     Indication: PSYCHOTIC DISORDER
     Dosage: 2 DF, UNK
  2. ERGENYL [Suspect]
     Active Substance: VALPROIC ACID
     Indication: EPILEPSY
     Dosage: 3 DF, UNK
  3. PHENHYDAN [Suspect]
     Active Substance: PHENYTOIN
     Indication: EPILEPSY
     Dosage: DAILY DOSE: 1 DF DOSAGE FORM EVERY DAY
  4. PIPAMPERONE [Concomitant]
     Active Substance: PIPAMPERONE
     Indication: SLEEP DISORDER
     Dosage: BEI BEDARF
     Dates: start: 201701
  5. PASCOFLAIR [Concomitant]
     Indication: SLEEP DISORDER
     Dosage: DAILY DOSE: 1 DF DOSAGE FORM EVERY DAY
     Route: 048
     Dates: start: 20161215, end: 20170108

REACTIONS (3)
  - Nocturia [Unknown]
  - Tonic convulsion [Unknown]
  - Tonic convulsion [Unknown]

NARRATIVE: CASE EVENT DATE: 20161222
